FAERS Safety Report 5423892-6 (Version None)
Quarter: 2007Q3

REPORT INFORMATION
  Report Type: 
  Country: None (occurrence: None)
  Receive Date: 20070823
  Receipt Date: 20070813
  Transmission Date: 20080115
  Serious: Yes (Other)
  Sender: FDA-Public Use
  Company Number: GB-SANOFI-SYNTHELABO-A01200709005

PATIENT
  Age: 76 Year
  Sex: Female
  Weight: 67 kg

DRUGS (7)
  1. NOVORAPID [Concomitant]
     Indication: DRUG USE FOR UNKNOWN INDICATION
     Dosage: UNK
     Route: 058
  2. LEVEMIR [Concomitant]
     Indication: DRUG USE FOR UNKNOWN INDICATION
     Dosage: UNK
     Route: 058
  3. ASPIRIN [Concomitant]
     Indication: CARDIAC DISORDER
     Route: 065
     Dates: start: 20010101
  4. CLOPIDOGREL [Suspect]
     Indication: STENT PLACEMENT
     Route: 048
     Dates: start: 20061115
  5. SIMVASTATIN [Concomitant]
     Indication: LIPIDS
     Route: 065
     Dates: start: 20010101
  6. HYDROXYZINE [Concomitant]
     Indication: HYPERSENSITIVITY
     Route: 065
     Dates: start: 20030101
  7. BISOPROLOL [Concomitant]
     Indication: CARDIAC DISORDER
     Route: 065
     Dates: start: 20020101

REACTIONS (2)
  - DIABETIC RETINOPATHY [None]
  - VITREOUS HAEMORRHAGE [None]
